FAERS Safety Report 4641009-2 (Version None)
Quarter: 2005Q2

REPORT INFORMATION
  Report Type: 
  Country: None (occurrence: None)
  Receive Date: 20050328
  Receipt Date: 20040805
  Transmission Date: 20051028
  Serious: Yes (Life-Threatening, Hospitalization, Disabling, Other)
  Sender: FDA-Public Use
  Company Number: WAES 0408USA00539

PATIENT
  Age: 61 Year
  Sex: Male

DRUGS (19)
  1. CANCIDAS [Suspect]
     Indication: CANDIDIASIS
     Dosage: 50 MG/ DAILY/ IV
     Route: 042
     Dates: start: 20040802, end: 20040804
  2. ATIVAN [Concomitant]
  3. CELEXA [Concomitant]
  4. LOPRESSOR [Concomitant]
  5. NEPHROCAPS [Concomitant]
  6. NEURONTIN [Concomitant]
  7. PHENERGAN [Concomitant]
  8. PROTONIX [Concomitant]
  9. RENAGEL [Concomitant]
  10. TYLENOL (CAPLET) [Concomitant]
  11. ZOCOR [Concomitant]
  12. ALBUTEROL [Concomitant]
  13. ASPIRIN [Concomitant]
  14. DACTINOMYCIN [Concomitant]
  15. INSULIN [Concomitant]
  16. ISOSORBIDE DINITRATE [Concomitant]
  17. LACTULOSE [Concomitant]
  18. LISINOPRIL [Concomitant]
  19. ZINC (UNSPECIFIED) [Concomitant]

REACTIONS (1)
  - ANAPHYLACTIC REACTION [None]
